FAERS Safety Report 5376649-9 (Version None)
Quarter: 2007Q2

REPORT INFORMATION
  Report Type: 
  Country: None (occurrence: None)
  Receive Date: 20070629
  Receipt Date: 20070620
  Transmission Date: 20071010
  Serious: Yes (Hospitalization)
  Sender: FDA-Public Use
  Company Number: MEDI-0005160

PATIENT
  Age: 17 Month

DRUGS (1)
  1. SYNAGIS [Suspect]
     Indication: ANTIVIRAL PROPHYLAXIS
     Dosage: 140 MG, INTRAMUSCULAR
     Route: 030
     Dates: start: 20051018, end: 20060214

REACTIONS (1)
  - ASTHMA [None]
